FAERS Safety Report 8579958-5 (Version None)
Quarter: 2012Q2

REPORT INFORMATION
  Report Type: 
  Country: None (occurrence: None)
  Receive Date: 20120423
  Receipt Date: 20090603
  Transmission Date: 20120825
  Serious: Yes (Other)
  Sender: FDA-Public Use
  Company Number: PHHY2009US66620

PATIENT
  Age: 73 Year
  Sex: Male

DRUGS (1)
  1. EXJADE [Suspect]
     Dosage: 1500 MG, QD, ORAL
     Route: 048
     Dates: start: 20090507

REACTIONS (4)
  - DIARRHOEA [None]
  - THROMBOCYTOPENIA [None]
  - GASTRITIS [None]
  - HAEMATOCHEZIA [None]
